FAERS Safety Report 16415261 (Version 1)
Quarter: 2019Q3

REPORT INFORMATION
  Report Type: Spontaneous
  Country: US (occurrence: US)
  Receive Date: 20190610
  Receipt Date: 20190610
  Transmission Date: 20191004
  Serious: No
  Sender: FDA-Public Use
  Company Number: None

PATIENT
  Age: 24 Year
  Sex: Female
  Weight: 45.9 kg

DRUGS (1)
  1. STELARA [Suspect]
     Active Substance: USTEKINUMAB
     Dosage: ?          OTHER FREQUENCY:EVERY 28 DAYS;?
     Route: 058
     Dates: start: 20181110, end: 20190410

REACTIONS (3)
  - Lethargy [None]
  - Confusional state [None]
  - Therapy cessation [None]

NARRATIVE: CASE EVENT DATE: 20190410
